FAERS Safety Report 4461847-9 (Version None)
Quarter: 2004Q3

REPORT INFORMATION
  Report Type: 
  Country: None (occurrence: None)
  Receive Date: 20040929
  Receipt Date: 20031031
  Transmission Date: 20050211
  Serious: No
  Sender: FDA-Public Use
  Company Number: US-GLAXOSMITHKLINE-A0432440A

PATIENT
  Age: 66 Year
  Sex: Female

DRUGS (8)
  1. SEREVENT [Suspect]
     Dosage: 50MCG TWICE PER DAY
     Route: 055
     Dates: start: 20031024
  2. COMBIVENT [Concomitant]
  3. FLOVENT [Concomitant]
  4. FLONASE [Concomitant]
  5. PAXIL [Concomitant]
     Route: 048
  6. LEVOXYL [Concomitant]
  7. ALLEGRA [Concomitant]
  8. RANITIDINE [Concomitant]

REACTIONS (1)
  - STOMATITIS [None]
